FAERS Safety Report 13049039 (Version 1)
Quarter: 2016Q4

REPORT INFORMATION
  Report Type: Spontaneous
  Country: US (occurrence: US)
  Receive Date: 20161220
  Receipt Date: 20161220
  Transmission Date: 20170207
  Serious: Yes (Death)
  Sender: FDA-Public Use
  Company Number: None

PATIENT
  Age: 69 Year
  Sex: Female

DRUGS (3)
  1. INLYTA [Suspect]
     Active Substance: AXITINIB
     Indication: B-CELL LYMPHOMA
  2. INLYTA [Suspect]
     Active Substance: AXITINIB
     Indication: MALIGNANT NEOPLASM OF RENAL PELVIS
  3. INLYTA [Suspect]
     Active Substance: AXITINIB
     Indication: RENAL CANCER

REACTIONS (1)
  - Death [None]

NARRATIVE: CASE EVENT DATE: 20161220
